FAERS Safety Report 6441941-3 (Version None)
Quarter: 2009Q4

REPORT INFORMATION
  Report Type: 
  Country: None (occurrence: None)
  Receive Date: 20091116
  Receipt Date: 20091104
  Transmission Date: 20100525
  Serious: Yes (Other)
  Sender: FDA-Public Use
  Company Number: CA-PFIZER INC-2009293215

PATIENT
  Sex: Female

DRUGS (2)
  1. ZELDOX [Suspect]
     Dosage: 60 MG, 2X/DAY
  2. EFFEXOR [Interacting]

REACTIONS (2)
  - DRUG INTERACTION [None]
  - SYNCOPE [None]
